FAERS Safety Report 7792488-3 (Version None)
Quarter: 2011Q4

REPORT INFORMATION
  Report Type: 
  Country: None (occurrence: None)
  Receive Date: 20111003
  Receipt Date: 20110929
  Transmission Date: 20120403
  Serious: Yes (Hospitalization)
  Sender: FDA-Public Use
  Company Number: CH-PFIZER INC-2011102047

PATIENT
  Age: 22 Year
  Sex: Female

DRUGS (14)
  1. INVANZ [Suspect]
     Indication: OSTEOMYELITIS
     Dosage: UNK
     Route: 042
     Dates: start: 20110512, end: 20110513
  2. CLINDAMYCIN HCL [Concomitant]
     Dosage: UNK
     Dates: start: 20110911
  3. GARAMYCIN [Suspect]
     Dosage: UNK
     Dates: start: 20110908
  4. TARGOCID [Suspect]
     Indication: OSTEOMYELITIS
     Dosage: UNK
     Route: 042
     Dates: start: 20110512, end: 20110613
  5. AUGMENTIN '125' [Concomitant]
     Indication: OSTEOMYELITIS
     Dosage: UNK
     Route: 048
     Dates: start: 20101126
  6. ZYVOX [Suspect]
     Indication: OSTEOMYELITIS
     Dosage: UNK
     Route: 048
     Dates: start: 20110507, end: 20110507
  7. CIPROFLAXACIN [Suspect]
     Indication: OSTEOMYELITIS
     Dosage: UNK
     Route: 048
     Dates: start: 20110507, end: 20110507
  8. TARGOCID [Suspect]
     Dosage: UNK
     Dates: start: 20110908
  9. GARAMYCIN [Suspect]
     Indication: OSTEOMYELITIS
     Dosage: UNK
     Route: 042
     Dates: start: 20110510, end: 20110511
  10. CIPROFLAXACIN [Suspect]
     Dosage: UNK
     Route: 042
     Dates: start: 20110509
  11. GARAMYCIN [Suspect]
     Dosage: UNK
     Dates: start: 20110514, end: 20110613
  12. CUBICIN [Concomitant]
     Indication: OSTEOMYELITIS
     Dosage: UNK
     Route: 042
     Dates: start: 20110510, end: 20110511
  13. ZYVOX [Suspect]
     Dosage: UNK
     Route: 042
     Dates: start: 20110509, end: 20110510
  14. CLINDAMYCIN HCL [Concomitant]
     Indication: OSTEOMYELITIS
     Dosage: UNK
     Dates: start: 20110428

REACTIONS (13)
  - CHEST DISCOMFORT [None]
  - DYSPNOEA [None]
  - PRURITUS [None]
  - INFUSION SITE PAIN [None]
  - VOMITING [None]
  - NAUSEA [None]
  - PARAESTHESIA [None]
  - HEADACHE [None]
  - ABDOMINAL PAIN [None]
  - URTICARIA [None]
  - ANAPHYLACTIC REACTION [None]
  - TACHYCARDIA [None]
  - RASH [None]
